FAERS Safety Report 9835380 (Version 2)
Quarter: 2014Q3

REPORT INFORMATION
  Report Type: Spontaneous
  Country: US (occurrence: US)
  Receive Date: 20140122
  Receipt Date: 20140723
  Transmission Date: 20150326
  Serious: Yes (Other)
  Sender: FDA-Public Use
  Company Number: US-BRISTOL-MYERS SQUIBB COMPANY-19526664

PATIENT
  Age: 82 Year
  Sex: Female
  Weight: 86.17 kg

DRUGS (3)
  1. WARFARIN SODIUM. [Suspect]
     Active Substance: WARFARIN SODIUM
     Indication: ATRIAL FLUTTER
     Route: 048
     Dates: start: 201305, end: 20130930
  2. ELIQUIS [Concomitant]
     Active Substance: APIXABAN
     Dates: start: 20131004, end: 2013
  3. XARELTO [Concomitant]
     Active Substance: RIVAROXABAN
     Route: 048
     Dates: start: 20131010

REACTIONS (2)
  - Toxicity to various agents [Unknown]
  - International normalised ratio increased [Unknown]
